FAERS Safety Report 5024348-5 (Version None)
Quarter: 2006Q2

REPORT INFORMATION
  Report Type: 
  Country: None (occurrence: None)
  Receive Date: 20060607
  Receipt Date: 20060530
  Transmission Date: 20061013
  Serious: Yes (Life-Threatening)
  Sender: FDA-Public Use
  Company Number: 225742

PATIENT
  Age: 66 Year
  Sex: Male
  Weight: 76 kg

DRUGS (1)
  1. MABTHERA                 (RITUXIMAB) [Suspect]
     Indication: NON-HODGKIN'S LYMPHOMA
     Dosage: 785 MG, QD; INTRAVENOUS
     Route: 042
     Dates: start: 20060110, end: 20060110

REACTIONS (4)
  - BLOOD PRESSURE ABNORMAL [None]
  - DIARRHOEA [None]
  - PYREXIA [None]
  - SHOCK [None]
